FAERS Safety Report 23113391 (Version 1)
Quarter: 2023Q4

REPORT INFORMATION
  Report Type: Spontaneous
  Country: CN (occurrence: None)
  Receive Date: 20231027
  Receipt Date: 20231027
  Transmission Date: 20240109
  Serious: Yes (Other)
  Sender: FDA-Public Use
  Company Number: CN-ROCHE-3444431

PATIENT
  Age: 41 Year
  Sex: Female
  Weight: 58.4 kg

DRUGS (3)
  1. KADCYLA [Suspect]
     Active Substance: ADO-TRASTUZUMAB EMTANSINE
     Indication: Breast cancer
     Route: 041
     Dates: start: 20230927
  2. SODIUM CHLORIDE [Concomitant]
     Active Substance: SODIUM CHLORIDE
     Indication: Lysozyme
     Route: 041
     Dates: start: 20230927, end: 20230927
  3. STERILE WATER FOR INJECTION [Concomitant]
     Active Substance: WATER
     Route: 041
     Dates: start: 20230927, end: 20230927

REACTIONS (2)
  - Platelet count decreased [Recovered/Resolved]
  - Myelosuppression [Recovering/Resolving]

NARRATIVE: CASE EVENT DATE: 20231005
